FAERS Safety Report 16192133 (Version 5)
Quarter: 2019Q3

REPORT INFORMATION
  Report Type: Spontaneous
  Country: US (occurrence: US)
  Receive Date: 20190412
  Receipt Date: 20190809
  Transmission Date: 20191004
  Serious: Yes (Other)
  Sender: FDA-Public Use
  Company Number: US-PFIZER INC-2019151085

PATIENT
  Age: 51 Year
  Sex: Female
  Weight: 84 kg

DRUGS (1)
  1. SILDENAFIL CITRATE. [Suspect]
     Active Substance: SILDENAFIL CITRATE
     Indication: PULMONARY HYPERTENSION
     Dosage: 40 MG, 2X/DAY
     Route: 048

REACTIONS (5)
  - Product use issue [Unknown]
  - Vitreous floaters [Unknown]
  - Vitreous detachment [Unknown]
  - Retinal detachment [Unknown]
  - Off label use [Unknown]

NARRATIVE: CASE EVENT DATE: 20190226
